FAERS Safety Report 6793259-7 (Version None)
Quarter: 2010Q2

REPORT INFORMATION
  Report Type: 
  Country: None (occurrence: None)
  Receive Date: 20100624
  Receipt Date: 20091002
  Transmission Date: 20101027
  Serious: Yes (Other)
  Sender: FDA-Public Use
  Company Number: US-MYLANLABS-2009S1017520

PATIENT
  Age: 39 Year
  Sex: Female

DRUGS (2)
  1. CLOZAPINE [Suspect]
     Route: 048
     Dates: end: 20090928
  2. CLOZAPINE [Suspect]
     Route: 048
     Dates: start: 20091002

REACTIONS (1)
  - GRANULOCYTOPENIA [None]
